FAERS Safety Report 8615060-1 (Version None)
Quarter: 2012Q3

REPORT INFORMATION
  Report Type: 
  Country: None (occurrence: None)
  Receive Date: 20120823
  Receipt Date: 20120821
  Transmission Date: 20120928
  Serious: Yes (Other)
  Sender: FDA-Public Use
  Company Number: PHEH2012US015779

PATIENT
  Sex: Female
  Weight: 77 kg

DRUGS (5)
  1. GILENYA [Suspect]
     Indication: MULTIPLE SCLEROSIS
     Dosage: 0.5 MG, QD
     Route: 048
     Dates: start: 20120807
  2. DESYREL [Concomitant]
     Dosage: 150 MG, QD
     Route: 048
     Dates: start: 20120604
  3. VITAMIN B-12 [Concomitant]
     Dosage: 1 DF, QD
     Route: 048
  4. MULTI-VITAMINS [Concomitant]
     Dosage: 1 DF, QD
     Route: 048
  5. RESTASIS [Concomitant]
     Dosage: 1 DROP IN EACH EYE TWICE DAILY
     Dates: start: 20120628

REACTIONS (3)
  - HEART RATE DECREASED [None]
  - BLOOD PRESSURE DECREASED [None]
  - FEELING ABNORMAL [None]
